FAERS Safety Report 9421360 (Version 2)
Quarter: 2014Q1

REPORT INFORMATION
  Report Type: Spontaneous
  Country: US (occurrence: US)
  Receive Date: 20130725
  Receipt Date: 20140108
  Transmission Date: 20141002
  Serious: Yes (Hospitalization)
  Sender: FDA-Public Use
  Company Number: US-B.I. PHARMACEUTICALS,INC./RIDGEFIELD-2013-BI-21650BP

PATIENT
  Sex: Male
  Weight: 97.98 kg

DRUGS (10)
  1. PRADAXA [Suspect]
     Indication: ANTICOAGULANT THERAPY
     Dates: start: 20120418, end: 20120423
  2. PRADAXA [Suspect]
     Indication: ATRIAL FIBRILLATION
  3. DICLOFENAC [Suspect]
     Indication: GOUT
  4. ALLOPURINOL [Concomitant]
  5. COREG [Concomitant]
  6. LASIX [Concomitant]
  7. LISINOPRIL [Concomitant]
  8. LOVENOX [Concomitant]
  9. NORVASC [Concomitant]
  10. SPIRONOLACTONE [Concomitant]

REACTIONS (3)
  - Gastrointestinal haemorrhage [Unknown]
  - Anaemia [Unknown]
  - Renal failure acute [Recovered/Resolved]
